FAERS Safety Report 6863973-3 (Version None)
Quarter: 2010Q3

REPORT INFORMATION
  Report Type: 
  Country: None (occurrence: None)
  Receive Date: 20100721
  Receipt Date: 20080317
  Transmission Date: 20110219
  Serious: No
  Sender: FDA-Public Use
  Company Number: US-PFIZER INC-2008024212

PATIENT
  Sex: Female
  Weight: 90.7 kg

DRUGS (6)
  1. CHANTIX [Suspect]
     Indication: SMOKING CESSATION THERAPY
     Dates: start: 20080307
  2. ATENOLOL [Concomitant]
     Indication: HYPERTENSION
  3. CLONIDINE [Concomitant]
     Indication: HYPERTENSION
  4. PRILOSEC [Concomitant]
     Indication: GASTROOESOPHAGEAL REFLUX DISEASE
  5. LEXAPRO [Concomitant]
     Indication: DEPRESSION
  6. BENICAR [Concomitant]

REACTIONS (8)
  - ABDOMINAL DISCOMFORT [None]
  - ASTHENIA [None]
  - BACK PAIN [None]
  - FLATULENCE [None]
  - HEADACHE [None]
  - INFLUENZA LIKE ILLNESS [None]
  - RETCHING [None]
  - VOMITING [None]
